FAERS Safety Report 15905183 (Version 1)
Quarter: 2019Q1

REPORT INFORMATION
  Report Type: Spontaneous
  Country: US (occurrence: US)
  Receive Date: 20190111
  Receipt Date: 20190111
  Transmission Date: 20190417
  Serious: No
  Sender: FDA-Public Use
  Company Number: None

PATIENT
  Age: 70 Day
  Sex: Female

DRUGS (2)
  1. CALCIPOTREINE-BETAMETH DIPROP [Suspect]
     Active Substance: BETAMETHASONE\CALCIPOTRIENE
     Indication: PSORIASIS
     Dosage: APPLY A THIN FILM TO PSORIATIC PLAQUES EVERYDAY
     Dates: start: 201810
  2. OTEZLA [Suspect]
     Active Substance: APREMILAST
     Indication: PSORIASIS
     Dosage: TAKE 1 TABLET BY MOUTH TWICE DAILY AS DIRECTED
     Route: 048
     Dates: start: 201811

REACTIONS (2)
  - Nausea [None]
  - Urinary tract infection [None]
